FAERS Safety Report 4424469-1 (Version None)
Quarter: 2004Q3

REPORT INFORMATION
  Report Type: 
  Country: None (occurrence: None)
  Receive Date: 20040812
  Receipt Date: 20040804
  Transmission Date: 20050211
  Serious: Yes (Other)
  Sender: FDA-Public Use
  Company Number: US-GLAXOSMITHKLINE-A0520946A

PATIENT
  Age: 42 Year
  Sex: Female

DRUGS (2)
  1. PAXIL [Suspect]
     Indication: DEPRESSION
     Route: 048
     Dates: end: 20040201
  2. NO CONCURRENT MEDICATION [Concomitant]

REACTIONS (4)
  - DEMENTIA [None]
  - HALLUCINATION [None]
  - MUSCLE TWITCHING [None]
  - PSYCHOTIC DISORDER [None]
